FAERS Safety Report 5141046-8 (Version None)
Quarter: 2006Q4

REPORT INFORMATION
  Report Type: 
  Country: None (occurrence: None)
  Receive Date: 20061026
  Receipt Date: 20060831
  Transmission Date: 20070319
  Serious: Yes (Hospitalization)
  Sender: FDA-Public Use
  Company Number: CHNY2006BR01590

PATIENT
  Age: 39 Year
  Sex: Male
  Weight: 74 kg

DRUGS (1)
  1. TRIMEDAL (NCH) (VITAMIN C, TROXERUTIN, ACETAMINOPHEN (PARACETAMOL), PH [Suspect]
     Indication: INFLUENZA
     Dosage: 1 DF, BID, ORAL
     Route: 048
     Dates: start: 20060516

REACTIONS (7)
  - BACTERIAL INFECTION [None]
  - BLOOD CHOLESTEROL INCREASED [None]
  - CELLULITIS [None]
  - FACIAL PAIN [None]
  - HYPERSENSITIVITY [None]
  - PHARMACEUTICAL PRODUCT COMPLAINT [None]
  - SWELLING FACE [None]
